FAERS Safety Report 21372373 (Version 3)
Quarter: 2023Q2

REPORT INFORMATION
  Report Type: Report from Study
  Country: GB (occurrence: GB)
  Receive Date: 20220924
  Receipt Date: 20230503
  Transmission Date: 20230722
  Serious: Yes (Other)
  Sender: FDA-Public Use
  Company Number: GB-NOVARTISPH-NVSC2022GB215056

PATIENT
  Age: 52 Year
  Sex: Female

DRUGS (1)
  1. KESIMPTA [Suspect]
     Active Substance: OFATUMUMAB
     Indication: Relapsing-remitting multiple sclerosis
     Dosage: 20 MG, QMO
     Route: 058
     Dates: start: 20220421

REACTIONS (2)
  - Brain neoplasm benign [Recovered/Resolved]
  - Epistaxis [Recovering/Resolving]

NARRATIVE: CASE EVENT DATE: 20220620
